FAERS Safety Report 4327878-4 (Version None)
Quarter: 2004Q1

REPORT INFORMATION
  Report Type: 
  Country: None (occurrence: None)
  Receive Date: 20040325
  Receipt Date: 20040319
  Transmission Date: 20041129
  Serious: Yes (Other)
  Sender: FDA-Public Use
  Company Number: K200400405

PATIENT

DRUGS (1)
  1. ALTACE [Suspect]
     Dosage: 2.5 - 5 MG, QD, ORAL
     Route: 048

REACTIONS (1)
  - ASTHMA [None]
